FAERS Safety Report 9373370 (Version 2)
Quarter: 2013Q3

REPORT INFORMATION
  Report Type: Spontaneous
  Country: US (occurrence: US)
  Receive Date: 20130627
  Receipt Date: 20130709
  Transmission Date: 20140515
  Serious: Yes (Hospitalization, Other)
  Sender: FDA-Public Use
  Company Number: US-TARO-2013P1009501

PATIENT
  Age: 61 Year
  Sex: Female
  Weight: 55.34 kg

DRUGS (4)
  1. WARFARIN SODIUM TABLETS USP 5MG [Suspect]
     Indication: CEREBROVASCULAR ACCIDENT
     Route: 048
  2. HYDROCHLORTHIAZIDE [Concomitant]
  3. PREDNISONE [Concomitant]
  4. LOVASTATIN [Concomitant]
     Indication: BLOOD CHOLESTEROL INCREASED

REACTIONS (2)
  - Cerebrovascular accident [Recovering/Resolving]
  - International normalised ratio fluctuation [Recovered/Resolved]
